FAERS Safety Report 24664795 (Version 2)
Quarter: 2024Q4

REPORT INFORMATION
  Report Type: Spontaneous
  Country: US (occurrence: US)
  Receive Date: 20241126
  Receipt Date: 20241210
  Transmission Date: 20250115
  Serious: No
  Sender: ROCHE
  Company Number: US-ROCHE-10000136728

PATIENT
  Age: 18 Year
  Sex: Female

DRUGS (2)
  1. XOLAIR [Suspect]
     Active Substance: OMALIZUMAB
     Indication: Anaphylactic reaction
     Dosage: STRENGTH: 300MG/2ML
     Route: 058
     Dates: start: 202408
  2. XOLAIR [Suspect]
     Active Substance: OMALIZUMAB
     Dosage: STRENGTH: 300MG/2ML
     Route: 058

REACTIONS (4)
  - Product use issue [Unknown]
  - Device defective [Unknown]
  - Product dose omission issue [Unknown]
  - No adverse event [Unknown]
